FAERS Safety Report 17693695 (Version 3)
Quarter: 2020Q2

REPORT INFORMATION
  Report Type: Spontaneous
  Country: US (occurrence: US)
  Receive Date: 20200422
  Receipt Date: 20200518
  Transmission Date: 20200714
  Serious: Yes (Other)
  Sender: FDA-Public Use
  Company Number: US-AMGEN-USASP2020063411

PATIENT
  Age: 72 Year
  Sex: Female

DRUGS (2)
  1. PROLIA [Suspect]
     Active Substance: DENOSUMAB
     Indication: OSTEOPOROSIS POSTMENOPAUSAL
     Dosage: 60 MILLIGRAM, Q6MO
     Route: 065
     Dates: start: 2018
  2. CARBOCAINE [Concomitant]
     Active Substance: MEPIVACAINE HYDROCHLORIDE
     Dosage: UNK
     Dates: start: 20191205

REACTIONS (10)
  - Bone loss [Unknown]
  - Fall [Unknown]
  - Chest pain [Unknown]
  - Gingival swelling [Recovering/Resolving]
  - Dermatitis [Unknown]
  - Dental necrosis [Unknown]
  - Loss of consciousness [Unknown]
  - Face injury [Unknown]
  - Muscle spasms [Unknown]
  - Fungal infection [Recovering/Resolving]

NARRATIVE: CASE EVENT DATE: 2018
